FAERS Safety Report 15698297 (Version 1)
Quarter: 2018Q4

REPORT INFORMATION
  Report Type: Spontaneous
  Country: US (occurrence: US)
  Receive Date: 20181126
  Receipt Date: 20181126
  Transmission Date: 20190205
  Serious: Yes (Other)
  Sender: FDA-Public Use
  Company Number: None

PATIENT
  Age: 43 Year
  Sex: Male

DRUGS (1)
  1. FLUTICASONE PROPIONATE NASAL SPRAY 50MCG [Suspect]
     Active Substance: FLUTICASONE PROPIONATE

REACTIONS (4)
  - Nasal dryness [None]
  - Product contamination physical [None]
  - Epistaxis [None]
  - Product complaint [None]

NARRATIVE: CASE EVENT DATE: 20180501
